FAERS Safety Report 16655865 (Version 1)
Quarter: 2019Q3

REPORT INFORMATION
  Report Type: Spontaneous
  Country: US (occurrence: US)
  Receive Date: 20190731
  Receipt Date: 20190731
  Transmission Date: 20191004
  Serious: No
  Sender: FDA-Public Use
  Company Number: None

PATIENT
  Age: 74 Year
  Sex: Female
  Weight: 50.4 kg

DRUGS (2)
  1. ATORVOSTATIN [Concomitant]
     Active Substance: ATORVASTATIN
  2. HARVONI [Suspect]
     Active Substance: LEDIPASVIR\SOFOSBUVIR
     Indication: HEPATITIS C

REACTIONS (3)
  - Drug eruption [None]
  - Drug hypersensitivity [None]
  - Lichenoid keratosis [None]

NARRATIVE: CASE EVENT DATE: 20181001
